FAERS Safety Report 12045856 (Version 1)
Quarter: 2016Q1

REPORT INFORMATION
  Report Type: Spontaneous
  Country: GB (occurrence: GB)
  Receive Date: 20160208
  Receipt Date: 20160208
  Transmission Date: 20160526
  Serious: Yes (Other)
  Sender: FDA-Public Use
  Company Number: GB-AMGEN-GBRSP2015021443

PATIENT
  Age: 61 Year
  Sex: Female

DRUGS (3)
  1. SULPHASALAZINE [Concomitant]
     Active Substance: SULFASALAZINE
     Indication: RHEUMATIC DISORDER
     Dosage: 2 G, UNK
  2. METHOTREXATE [Concomitant]
     Active Substance: METHOTREXATE
     Indication: RHEUMATIC DISORDER
     Dosage: 20 MG, UNK
  3. ENBREL [Suspect]
     Active Substance: ETANERCEPT
     Indication: RHEUMATOID ARTHRITIS
     Dosage: 50 MG, WEEKLY (ONCE WEEKLY)
     Route: 065
     Dates: start: 20150112

REACTIONS (6)
  - Arthralgia [Unknown]
  - Myalgia [Unknown]
  - Back pain [Unknown]
  - Joint destruction [Unknown]
  - Osteoarthritis [Unknown]
  - Injection site pain [Unknown]

NARRATIVE: CASE EVENT DATE: 2015
